FAERS Safety Report 17611714 (Version 2)
Quarter: 2021Q2

REPORT INFORMATION
  Report Type: Report from Study
  Country: CH (occurrence: CH)
  Receive Date: 20200401
  Receipt Date: 20210624
  Transmission Date: 20210716
  Serious: Yes (Congenital Anomaly)
  Sender: FDA-Public Use
  Company Number: CH-BAYER-2020-053088

PATIENT

DRUGS (1)
  1. CIPROFLOXACIN. [Suspect]
     Active Substance: CIPROFLOXACIN
     Dosage: UNK
     Route: 064

REACTIONS (2)
  - Congenital skin disorder [None]
  - Foetal exposure during pregnancy [None]
